FAERS Safety Report 4813126-5 (Version None)
Quarter: 2005Q4

REPORT INFORMATION
  Report Type: 
  Country: None (occurrence: None)
  Receive Date: 20051028
  Receipt Date: 20050615
  Transmission Date: 20060501
  Serious: No
  Sender: FDA-Public Use
  Company Number: US-GLAXOSMITHKLINE-A0562816A

PATIENT
  Age: 73 Year
  Sex: Female

DRUGS (12)
  1. ADVAIR DISKUS 100/50 [Suspect]
     Indication: CHRONIC OBSTRUCTIVE PULMONARY DISEASE
     Dosage: 1PUFF TWICE PER DAY
     Route: 055
  2. EVISTA [Concomitant]
  3. METOPROLOL [Concomitant]
  4. GLUCOTROL [Concomitant]
  5. PREDNISONE [Concomitant]
  6. OXYGEN [Concomitant]
  7. ALBUTEROL [Concomitant]
  8. ZOLOFT [Concomitant]
  9. LIPITOR [Concomitant]
  10. VESICARE [Concomitant]
  11. ASPIRIN [Concomitant]
  12. MULTI-VITAMIN [Concomitant]

REACTIONS (5)
  - CONSTIPATION [None]
  - DRY MOUTH [None]
  - INCREASED APPETITE [None]
  - MUSCLE SPASMS [None]
  - PHARYNGOLARYNGEAL PAIN [None]
